FAERS Safety Report 5848464-0 (Version None)
Quarter: 2008Q3

REPORT INFORMATION
  Report Type: 
  Country: None (occurrence: None)
  Receive Date: 20080818
  Receipt Date: 20080505
  Transmission Date: 20090109
  Serious: No
  Sender: FDA-Public Use
  Company Number: US-BAYER-200822117NA

PATIENT
  Age: 55 Year
  Sex: Male
  Weight: 136 kg

DRUGS (12)
  1. BETASERON [Suspect]
     Indication: RELAPSING-REMITTING MULTIPLE SCLEROSIS
     Dosage: TOTAL DAILY DOSE: 2 MIU
     Route: 058
  2. COUMADIN [Concomitant]
     Route: 048
  3. LANTUS [Concomitant]
  4. K-TAB [Concomitant]
     Dosage: TOTAL DAILY DOSE: 40 MEQ
     Route: 048
  5. LASIX [Concomitant]
     Dosage: TOTAL DAILY DOSE: 160 MG
     Route: 048
  6. VERAPAMIL ER [Concomitant]
     Dosage: TOTAL DAILY DOSE: 240 MG
  7. DILAUDID [Concomitant]
     Route: 048
  8. LISINOPRIL [Concomitant]
     Dosage: TOTAL DAILY DOSE: 5 MG
  9. NEURONTIN [Concomitant]
     Dosage: TOTAL DAILY DOSE: 900 MG
     Route: 048
  10. IMDUR [Concomitant]
     Dosage: TOTAL DAILY DOSE: 75 MG
     Route: 048
  11. HUMULIN R [Concomitant]
  12. INDOMETHACIN [Concomitant]
     Dosage: TOTAL DAILY DOSE: 150 MG
     Route: 048

REACTIONS (4)
  - INJECTION SITE HAEMATOMA [None]
  - INJECTION SITE IRRITATION [None]
  - INJECTION SITE NECROSIS [None]
  - INJECTION SITE PAIN [None]
